FAERS Safety Report 16935679 (Version 1)
Quarter: 2019Q4

REPORT INFORMATION
  Report Type: Spontaneous
  Country: US (occurrence: US)
  Receive Date: 20190827
  Receipt Date: 20190827
  Transmission Date: 20200122
  Serious: Yes (Hospitalization)
  Sender: FDA-Public Use
  Company Number: None

PATIENT
  Age: 56 Year
  Sex: Female

DRUGS (16)
  1. ASPIRIN. [Suspect]
     Active Substance: ASPIRIN
  2. SILDENAFILL 20MG [Suspect]
     Active Substance: SILDENAFIL
     Indication: PULMONARY HYPERTENSION
     Route: 048
  3. POT CHLOR [Concomitant]
  4. LANTUS [Concomitant]
     Active Substance: INSULIN GLARGINE
  5. AMIODARONE [Concomitant]
     Active Substance: AMIODARONE
  6. CARVEDILOL. [Concomitant]
     Active Substance: CARVEDILOL
  7. HYDRALAZINE [Concomitant]
     Active Substance: HYDRALAZINE HYDROCHLORIDE
  8. SILDENAFIL. [Concomitant]
     Active Substance: SILDENAFIL
  9. TAMOXIFEN [Concomitant]
     Active Substance: TAMOXIFEN
  10. FEROSUL [Concomitant]
  11. ALLOPURINOL. [Concomitant]
     Active Substance: ALLOPURINOL
  12. AMLODIPINE [Concomitant]
     Active Substance: AMLODIPINE BESYLATE
  13. WARFARIN [Concomitant]
     Active Substance: WARFARIN
  14. BUMETADINE [Concomitant]
     Active Substance: BUMETANIDE
  15. HUMALOG [Concomitant]
     Active Substance: INSULIN LISPRO
  16. SENNA S [Concomitant]
     Active Substance: DOCUSATE SODIUM\SENNA LEAF

REACTIONS (1)
  - Hospitalisation [None]

NARRATIVE: CASE EVENT DATE: 2019
